FAERS Safety Report 9044916 (Version 1)
Quarter: 2013Q1

REPORT INFORMATION
  Report Type: Report from Study
  Country: JP (occurrence: JP)
  Receive Date: 20130130
  Receipt Date: 20130130
  Transmission Date: 20140127
  Serious: Yes (Other)
  Sender: FDA-Public Use
  Company Number: JP-GLAXOSMITHKLINE-B0860757A

PATIENT
  Age: 8 None
  Sex: Male
  Weight: 27.6 kg

DRUGS (13)
  1. ARRANON [Suspect]
     Indication: PRECURSOR T-LYMPHOBLASTIC LYMPHOMA/LEUKAEMIA
     Dosage: 650MGM2 PER DAY
     Route: 042
     Dates: start: 20080512, end: 20080514
  2. METHOTREXATE [Concomitant]
     Indication: NEOPLASM MALIGNANT
     Dates: start: 20080424, end: 20080509
  3. CYLOCIDE [Concomitant]
     Indication: NEOPLASM MALIGNANT
     Dates: start: 20080424, end: 20080509
  4. HYDROCORTONE [Concomitant]
     Indication: NEOPLASM MALIGNANT
     Dates: start: 20080424, end: 20080509
  5. ZOVIRAX [Concomitant]
     Indication: INFECTION PROPHYLAXIS
     Route: 048
     Dates: start: 20080421, end: 20080602
  6. FUNGUARD [Concomitant]
     Indication: INFECTION PROPHYLAXIS
     Route: 048
     Dates: start: 20080424, end: 20080602
  7. PREDONINE [Concomitant]
     Indication: VIITH NERVE PARALYSIS
     Route: 048
     Dates: start: 20080425, end: 20080525
  8. OMEPRAL [Concomitant]
     Indication: PROPHYLAXIS AGAINST GASTROINTESTINAL ULCER
     Route: 048
     Dates: start: 20080425, end: 20080602
  9. METHYCOBAL [Concomitant]
     Indication: VIITH NERVE PARALYSIS
     Route: 048
     Dates: start: 20080427, end: 20080602
  10. NEOLAMIN [Concomitant]
     Indication: PARENTERAL NUTRITION
     Route: 065
     Dates: start: 20080503, end: 20080512
  11. ELEMENMIC [Concomitant]
     Indication: PARENTERAL NUTRITION
     Route: 048
     Dates: start: 20080503, end: 20080512
  12. PENTCILLIN [Concomitant]
     Indication: INFECTION PROPHYLAXIS
     Route: 048
     Dates: start: 20080517, end: 20080521
  13. LICORICE [Concomitant]
     Indication: HEPATIC FUNCTION ABNORMAL
     Route: 048
     Dates: start: 20080513, end: 20080527

REACTIONS (2)
  - Ventricular arrhythmia [Recovering/Resolving]
  - Somnolence [Recovered/Resolved]
